FAERS Safety Report 24836112 (Version 2)
Quarter: 2025Q1

REPORT INFORMATION
  Report Type: Spontaneous
  Country: US (occurrence: US)
  Receive Date: 20250113
  Receipt Date: 20250325
  Transmission Date: 20250409
  Serious: No
  Sender: LEO PHARM
  Company Number: US-LEO Pharma-376745

PATIENT
  Age: 65 Year
  Sex: Male

DRUGS (1)
  1. ADBRY [Suspect]
     Active Substance: TRALOKINUMAB-LDRM
     Indication: Dermatitis atopic
     Dosage: TREATMENT REPORTED AS ONGOING
     Route: 058
     Dates: start: 202412

REACTIONS (2)
  - Eye pain [Unknown]
  - Vision blurred [Recovered/Resolved]
